APPROVED DRUG PRODUCT: METHYLPHENIDATE HYDROCHLORIDE
Active Ingredient: METHYLPHENIDATE HYDROCHLORIDE
Strength: 36MG
Dosage Form/Route: TABLET, EXTENDED RELEASE;ORAL
Application: A205135 | Product #003 | TE Code: AB
Applicant: SUN PHARMACEUTICAL INDUSTRIES INC
Approved: Aug 19, 2020 | RLD: No | RS: No | Type: RX